FAERS Safety Report 17396569 (Version 6)
Quarter: 2020Q4

REPORT INFORMATION
  Report Type: Spontaneous
  Country: US (occurrence: US)
  Receive Date: 20200210
  Receipt Date: 20201029
  Transmission Date: 20210113
  Serious: No
  Sender: FDA-Public Use
  Company Number: US-PFIZER INC-2020058244

PATIENT
  Age: 42 Year
  Sex: Male

DRUGS (4)
  1. CELEBREX [Suspect]
     Active Substance: CELECOXIB
     Indication: PAIN
     Dosage: 200 MG, 2X/DAY
     Dates: start: 20160613
  2. CELEBREX [Suspect]
     Active Substance: CELECOXIB
     Indication: ARTHRALGIA
  3. CELEBREX [Suspect]
     Active Substance: CELECOXIB
     Indication: ROAD TRAFFIC ACCIDENT
     Dosage: 400 MG, 2X/DAY
     Route: 048
     Dates: start: 20200204
  4. CELEBREX [Suspect]
     Active Substance: CELECOXIB
     Indication: BACK PAIN

REACTIONS (2)
  - Off label use [Unknown]
  - Drug ineffective for unapproved indication [Unknown]
